FAERS Safety Report 13651532 (Version 2)
Quarter: 2017Q3

REPORT INFORMATION
  Report Type: Spontaneous
  Country: FR (occurrence: FR)
  Receive Date: 20170614
  Receipt Date: 20170808
  Transmission Date: 20171127
  Serious: Yes (Other)
  Sender: FDA-Public Use
  Company Number: FR-TEVA-776275ROM

PATIENT
  Age: 24 Year
  Sex: Female
  Weight: 47 kg

DRUGS (2)
  1. FEMIBION [Concomitant]
     Active Substance: VITAMINS
     Route: 048
  2. LEELOO 0.1 MG/0.02 MG [Suspect]
     Active Substance: ETHINYL ESTRADIOL\LEVONORGESTREL
     Indication: CONTRACEPTION
     Dosage: 1 DOSAGE FORM = 0.02 MG ETHINYLESTRADIOL + 0.1 MG LEVONORGESTREL
     Route: 048
     Dates: start: 20170530, end: 20170531

REACTIONS (4)
  - Throat irritation [Recovered/Resolved]
  - Angioedema [Recovered/Resolved]
  - Swollen tongue [Recovered/Resolved]
  - Dry throat [Recovered/Resolved]

NARRATIVE: CASE EVENT DATE: 20170531
